FAERS Safety Report 10384205 (Version 1)
Quarter: 2014Q1

REPORT INFORMATION
  Report Type: Spontaneous
  Country: US (occurrence: None)
  Receive Date: 20140306
  Receipt Date: 20140306
  Transmission Date: 20141002
  Serious: Yes (Other)
  Sender: FDA-Public Use
  Company Number: 163-21880-13110103

PATIENT
  Age: 84 Year
  Sex: Female

DRUGS (8)
  1. REVLIMID (LENALIDOMIDE)(10 MILLIGRAM, CAPSULES) [Suspect]
     Indication: PLASMA CELL MYELOMA
     Route: 048
     Dates: start: 201102
  2. DEXAMETHASONE(DEXAMETHASONE)(UNKNOWN) [Concomitant]
  3. OMEPRAZOLE(OMEPRAZOLE)(UNKNOWN) [Concomitant]
  4. AMLODIPINE BESYLATE(AMLODIPINE BESILATE)(UNKNOWN) [Concomitant]
  5. ZOMETA(ZOLEDRONIC ACID) (UNKNOWN) [Concomitant]
  6. VALTREX(VALACICLOVIR HYDROCHLORIDE)(UNKNOWN) [Concomitant]
  7. ENOXAPARIN(ENOXAPARIN)(UNKNOWN) [Concomitant]
  8. METOPROLOL SUCCINATE(METOPROLOL SUCCINATE)(UNKNOWN) [Concomitant]

REACTIONS (1)
  - Thrombosis [None]
